FAERS Safety Report 14171474 (Version 3)
Quarter: 2018Q4

REPORT INFORMATION
  Report Type: Spontaneous
  Country: JP (occurrence: JP)
  Receive Date: 20171108
  Receipt Date: 20181127
  Transmission Date: 20190204
  Serious: Yes (Death, Hospitalization)
  Sender: FDA-Public Use
  Company Number: JP-SA-2017SA213363

PATIENT
  Age: 54 Year
  Sex: Female
  Weight: 42 kg

DRUGS (2)
  1. TS-1 [Concomitant]
     Active Substance: GIMERACIL\OTERACIL\TEGAFUR
     Dosage: UNK UNK,UNK
     Route: 065
     Dates: start: 20161219
  2. ELPLAT [Suspect]
     Active Substance: OXALIPLATIN
     Indication: GASTRIC CANCER
     Dosage: 181.2 MG, QD
     Route: 041
     Dates: start: 20161219, end: 20161219

REACTIONS (5)
  - Hereditary motor and sensory neuropathy [Recovered/Resolved]
  - Hyporeflexia [Recovered/Resolved]
  - Neuropathy peripheral [Unknown]
  - Muscular weakness [Recovered/Resolved]
  - Paraesthesia [Recovered/Resolved]

NARRATIVE: CASE EVENT DATE: 20161221
